FAERS Safety Report 21149930 (Version 4)
Quarter: 2022Q4

REPORT INFORMATION
  Report Type: Spontaneous
  Country: US (occurrence: US)
  Receive Date: 20220729
  Receipt Date: 20221005
  Transmission Date: 20230113
  Serious: No
  Sender: FDA-Public Use
  Company Number: US-PFIZER INC-PV202200032673

PATIENT
  Age: 81 Year
  Sex: Male

DRUGS (2)
  1. TIKOSYN [Suspect]
     Active Substance: DOFETILIDE
     Indication: Atrial fibrillation
     Dosage: 0.500 MG
  2. TIKOSYN [Suspect]
     Active Substance: DOFETILIDE
     Dosage: EVERY 12 HOURS
     Route: 048
     Dates: start: 20220128

REACTIONS (2)
  - Off label use [Unknown]
  - Memory impairment [Unknown]
